FAERS Safety Report 8966705 (Version 2)
Quarter: 2013Q1

REPORT INFORMATION
  Report Type: Report from Study
  Country: JP (occurrence: JP)
  Receive Date: 20121217
  Receipt Date: 20130204
  Transmission Date: 20140127
  Serious: Yes (Death, Hospitalization)
  Sender: FDA-Public Use
  Company Number: JP-GENZYME-THYM-1003543

PATIENT
  Age: 61 Year
  Sex: Female

DRUGS (12)
  1. THYMOGLOBULIN [Suspect]
     Indication: ACUTE GRAFT VERSUS HOST DISEASE
     Dosage: 42 MG, QD
     Route: 065
     Dates: start: 20120927, end: 20121030
  2. CORTICOSTEROIDS [Suspect]
     Indication: ACUTE GRAFT VERSUS HOST DISEASE
     Dosage: UNK
     Route: 065
     Dates: start: 20120914, end: 20121114
  3. CORTICOSTEROIDS [Suspect]
     Dosage: UNK (PULSE THERAPY)
     Route: 065
     Dates: start: 20120921, end: 20121001
  4. TACROLIMUS [Concomitant]
     Indication: ACUTE GRAFT VERSUS HOST DISEASE
     Dosage: UNK
     Route: 065
     Dates: start: 20120918, end: 20121113
  5. GLYCYRRHIZINATE GLYCINE L- CYTEINE [Concomitant]
     Indication: ACUTE GRAFT VERSUS HOST DISEASE
     Dosage: UNK
     Route: 065
     Dates: start: 20120921, end: 20121017
  6. CEFEPIME HYDROCHLORIDE [Concomitant]
     Indication: ANTIBIOTIC PROPHYLAXIS
     Dosage: UNK
     Route: 065
     Dates: start: 20120922, end: 20121030
  7. MICAFUNGIN SODIUM [Concomitant]
     Indication: ANTIFUNGAL PROPHYLAXIS
     Dosage: UNK
     Route: 065
     Dates: end: 20121107
  8. ACICLOVIR [Concomitant]
     Indication: ANTIVIRAL PROPHYLAXIS
     Dosage: UNK
     Route: 065
     Dates: start: 20120914, end: 20121112
  9. OMEPRAZOLE [Concomitant]
     Indication: PROPHYLAXIS
     Dosage: UNK
     Route: 065
     Dates: start: 20120927, end: 20121112
  10. FENTANYL [Concomitant]
     Indication: ABDOMINAL PAIN
     Dosage: UNK
     Route: 065
     Dates: start: 20120927, end: 20121107
  11. ALENDRONATE SODIUM [Concomitant]
     Indication: OSTEOPOROSIS PROPHYLAXIS
     Dosage: UNK
     Route: 065
     Dates: start: 20121017, end: 20121017
  12. OXYCODONE HYDROCHLORIDE [Concomitant]
     Indication: ABDOMINAL PAIN
     Dosage: UNK
     Route: 065
     Dates: start: 20121107, end: 20121114

REACTIONS (4)
  - Bronchopulmonary aspergillosis [Fatal]
  - Cytomegalovirus enterocolitis [Recovered/Resolved]
  - Staphylococcal sepsis [Recovered/Resolved]
  - Graft versus host disease [Fatal]
